FAERS Safety Report 7296187-6 (Version None)
Quarter: 2011Q1

REPORT INFORMATION
  Report Type: 
  Country: None (occurrence: None)
  Receive Date: 20110216
  Receipt Date: 20110207
  Transmission Date: 20110831
  Serious: Yes (Hospitalization)
  Sender: FDA-Public Use
  Company Number: US-JNJCH-2011003629

PATIENT
  Age: 9 Year
  Sex: Male

DRUGS (2)
  1. DIPHENHYDRAMINE [Suspect]
     Indication: NASAL CONGESTION
     Dosage: TEXT:UNKNOWN
     Route: 065
  2. DIPHENHYDRAMINE [Suspect]
     Indication: INSOMNIA

REACTIONS (4)
  - OFF LABEL USE [None]
  - DRUG SCREEN POSITIVE [None]
  - ALTERED STATE OF CONSCIOUSNESS [None]
  - HALLUCINATION, VISUAL [None]
